FAERS Safety Report 5037683-1 (Version None)
Quarter: 2006Q2

REPORT INFORMATION
  Report Type: 
  Country: None (occurrence: None)
  Receive Date: 20060627
  Receipt Date: 20060627
  Transmission Date: 20061013
  Serious: Yes (Other)
  Sender: FDA-Public Use
  Company Number: None

PATIENT
  Age: 16 Year
  Sex: Male
  Weight: 56.246 kg

DRUGS (1)
  1. ACCUTANE [Suspect]
     Indication: ACNE CYSTIC
     Dosage: PREPACKAGED DOSAGE DAILY PO
     Route: 048
     Dates: start: 20020201, end: 20021115

REACTIONS (6)
  - DEPRESSION [None]
  - EPISTAXIS [None]
  - MALAISE [None]
  - PAIN [None]
  - SCAR [None]
  - SKIN LESION [None]
